FAERS Safety Report 8513369-3 (Version None)
Quarter: 2012Q3

REPORT INFORMATION
  Report Type: 
  Country: None (occurrence: None)
  Receive Date: 20120716
  Receipt Date: 20120705
  Transmission Date: 20120928
  Serious: Yes (Other)
  Sender: FDA-Public Use
  Company Number: US-ASTRAZENECA-2012SE39155

PATIENT
  Age: 45 Year
  Sex: Female
  Weight: 88.9 kg

DRUGS (8)
  1. KLONOPIN [Concomitant]
     Indication: NERVOUS SYSTEM DISORDER
  2. SEROQUEL XR [Suspect]
     Indication: SLEEP DISORDER
     Route: 048
  3. OXYCODONE HCL [Concomitant]
     Indication: PAIN
  4. SEROQUEL XR [Suspect]
     Route: 048
     Dates: start: 20120404
  5. ATENOLOL [Concomitant]
     Indication: BLOOD PRESSURE
  6. SEROQUEL XR [Suspect]
     Indication: MAJOR DEPRESSION
     Route: 048
  7. SEROQUEL XR [Suspect]
     Route: 048
     Dates: start: 20120404
  8. LISINOPRIL [Concomitant]
     Indication: BLOOD PRESSURE

REACTIONS (9)
  - LOWER LIMB FRACTURE [None]
  - FALL [None]
  - ADVERSE EVENT [None]
  - INTENTIONAL DRUG MISUSE [None]
  - BLOOD CHOLESTEROL INCREASED [None]
  - ARTHRITIS [None]
  - INTERVERTEBRAL DISC DEGENERATION [None]
  - DEPRESSION [None]
  - ANKLE FRACTURE [None]
